FAERS Safety Report 23763083 (Version 1)
Quarter: 2024Q2

REPORT INFORMATION
  Report Type: Spontaneous
  Country: FR (occurrence: FR)
  Receive Date: 20240419
  Receipt Date: 20240419
  Transmission Date: 20240716
  Serious: Yes (Other)
  Sender: FDA-Public Use
  Company Number: FR-Pharmaand-2024000167

PATIENT
  Age: 31 Year
  Sex: Male
  Weight: 72 kg

DRUGS (16)
  1. PEGASYS [Suspect]
     Active Substance: PEGINTERFERON ALFA-2A
     Indication: Choroiditis
     Dosage: FREQUENCY NOT REPORTED
     Dates: start: 202401
  2. PEGASYS [Suspect]
     Active Substance: PEGINTERFERON ALFA-2A
     Dosage: 180 ?G, 1X/WEEK
     Dates: start: 202402
  3. PEGASYS [Suspect]
     Active Substance: PEGINTERFERON ALFA-2A
     Dosage: FREQUENCY NOT REPORTED
     Dates: start: 202403, end: 20240319
  4. VALACYCLOVIR HYDROCHLORIDE [Concomitant]
     Active Substance: VALACYCLOVIR HYDROCHLORIDE
     Dosage: 2 TABLETS 3 TIMES A DAY
  5. VALACYCLOVIR HYDROCHLORIDE [Concomitant]
     Active Substance: VALACYCLOVIR HYDROCHLORIDE
     Dosage: 5 TABLETS PER DAY
  6. VALACYCLOVIR HYDROCHLORIDE [Concomitant]
     Active Substance: VALACYCLOVIR HYDROCHLORIDE
     Dosage: 4 TABLETS PER DAY
  7. VALACYCLOVIR HYDROCHLORIDE [Concomitant]
     Active Substance: VALACYCLOVIR HYDROCHLORIDE
     Dosage: 3 TABLETS PER DAY
  8. VALACYCLOVIR HYDROCHLORIDE [Concomitant]
     Active Substance: VALACYCLOVIR HYDROCHLORIDE
     Dosage: 2 TABLETS PER DAY
  9. VALACYCLOVIR HYDROCHLORIDE [Concomitant]
     Active Substance: VALACYCLOVIR HYDROCHLORIDE
     Dosage: 1 TABLET PER DAY
  10. PANTOPRAZOLE SODIUM [Concomitant]
     Active Substance: PANTOPRAZOLE SODIUM
     Dosage: IN THE MORNING
  11. DIFFU K 660 MG [Concomitant]
     Dosage: 1 DOSAGE FORM MORNING AND EVENING
  12. CLARADOL CAFFEINE 500-50 MG [Concomitant]
     Indication: Pain
     Dosage: 2 TABLETS 3 TIMES/DAY IN CASE OF PAIN
  13. PREDNISONE [Concomitant]
     Active Substance: PREDNISONE
     Dosage: IN THE MORNING
     Dates: end: 20240216
  14. PREDNISONE [Concomitant]
     Active Substance: PREDNISONE
     Dosage: 45 MG, 1X/DAY
     Dates: end: 20240302
  15. PREDNISONE [Concomitant]
     Active Substance: PREDNISONE
     Dosage: 40 MG, 1X/DAY
  16. CACIT D3 1000/880 [Concomitant]
     Dosage: 1 DOSAGE FORM, 1X/DAY

REACTIONS (5)
  - Thrombocytopenia [Unknown]
  - Leukopenia [Unknown]
  - Hypercholesterolaemia [Unknown]
  - Off label use [Unknown]
  - Liver disorder [Unknown]

NARRATIVE: CASE EVENT DATE: 20240223
